FAERS Safety Report 18916201 (Version 2)
Quarter: 2021Q1

REPORT INFORMATION
  Report Type: Report from Study
  Country: DE (occurrence: DE)
  Receive Date: 20210218
  Receipt Date: 20210312
  Transmission Date: 20210420
  Serious: Yes (Other)
  Sender: FDA-Public Use
  Company Number: DE-CELLTRION INC.-2021DE001850

PATIENT

DRUGS (5)
  1. TRUXIMA [Suspect]
     Active Substance: RITUXIMAB-ABBS
     Dosage: 375 MG/M2 (DAY 1 EVERY SECOND CYCLE)
     Route: 042
     Dates: end: 20201229
  2. TRUXIMA [Suspect]
     Active Substance: RITUXIMAB-ABBS
     Indication: MARGINAL ZONE LYMPHOMA
     Dosage: 375 MG/M2 (DAY 1 EVERY SECOND CYCLE)
     Route: 042
     Dates: start: 20191218
  3. COPANLISIB. [Suspect]
     Active Substance: COPANLISIB
     Dosage: 60 MG, UNK (DAY 1, 15 EVERY CYCLE)
     Route: 042
     Dates: end: 20210125
  4. COPANLISIB. [Suspect]
     Active Substance: COPANLISIB
     Dosage: 30 MG, UNK
     Route: 042
     Dates: start: 20210223
  5. COPANLISIB. [Suspect]
     Active Substance: COPANLISIB
     Indication: MARGINAL ZONE LYMPHOMA
     Dosage: 60 MG ON DAYS 1, 8, AND 15 OF EVERY CYCLE
     Route: 042
     Dates: start: 20191218

REACTIONS (3)
  - Leukopenia [Recovered/Resolved]
  - Neutropenia [Recovered/Resolved]
  - Off label use [Unknown]

NARRATIVE: CASE EVENT DATE: 20210209
